FAERS Safety Report 16844255 (Version 1)
Quarter: 2019Q3

REPORT INFORMATION
  Report Type: Spontaneous
  Country: CN (occurrence: CN)
  Receive Date: 20190924
  Receipt Date: 20190924
  Transmission Date: 20191005
  Serious: No
  Sender: FDA-Public Use
  Company Number: CN-BEH-2019107273

PATIENT
  Age: 33 Year
  Sex: Male

DRUGS (1)
  1. ALBUMIN HUMAN (INN) [Suspect]
     Active Substance: ALBUMIN HUMAN
     Indication: BLOOD ALBUMIN ABNORMAL
     Dosage: 20 GRAM, QD
     Route: 041
     Dates: start: 20190917, end: 20190919

REACTIONS (1)
  - Chest discomfort [Recovering/Resolving]

NARRATIVE: CASE EVENT DATE: 20190919
